FAERS Safety Report 24878762 (Version 1)
Quarter: 2025Q1

REPORT INFORMATION
  Report Type: Spontaneous
  Country: US (occurrence: None)
  Receive Date: 20250122
  Receipt Date: 20250122
  Transmission Date: 20250408
  Serious: Yes (Hospitalization)
  Sender: FDA-CTU
  Company Number: None

PATIENT
  Age: 76 Year
  Sex: Male

DRUGS (2)
  1. APIXABAN [Suspect]
     Active Substance: APIXABAN
     Indication: Atrial fibrillation
  2. ASPIRIN [Suspect]
     Active Substance: ASPIRIN

REACTIONS (15)
  - Gastrointestinal haemorrhage [None]
  - Dyspnoea [None]
  - Dialysis [None]
  - Abdominal pain [None]
  - Dialysis related complication [None]
  - Gastrointestinal arteriovenous malformation [None]
  - Haemorrhagic arteriovenous malformation [None]
  - Diverticulum intestinal [None]
  - Hyperbilirubinaemia [None]
  - Therapy interrupted [None]
  - White blood cell count increased [None]
  - Normocytic anaemia [None]
  - Brain natriuretic peptide increased [None]
  - Troponin increased [None]
  - Red blood cell transfusion [None]

NARRATIVE: CASE EVENT DATE: 20241227
